FAERS Safety Report 22662095 (Version 5)
Quarter: 2023Q4

REPORT INFORMATION
  Report Type: Spontaneous
  Country: CA (occurrence: CA)
  Receive Date: 20230701
  Receipt Date: 20231223
  Transmission Date: 20240109
  Serious: Yes (Other)
  Sender: FDA-Public Use
  Company Number: CA-CELLTRION INC.-2023CA002558

PATIENT

DRUGS (10)
  1. INFLECTRA [Suspect]
     Active Substance: INFLIXIMAB-DYYB
     Indication: Crohn^s disease
     Dosage: 330 MG, EVERY 8 WEEKS
     Route: 042
     Dates: start: 20230113
  2. INFLECTRA [Suspect]
     Active Substance: INFLIXIMAB-DYYB
     Dosage: 330 MG, EVERY 8 WEEKS
     Route: 042
     Dates: start: 20230113, end: 20230622
  3. INFLECTRA [Suspect]
     Active Substance: INFLIXIMAB-DYYB
     Dosage: 330 MG, ON 2 WEEKS, EVERY 8 WEEKS
     Route: 042
     Dates: start: 20230125
  4. INFLECTRA [Suspect]
     Active Substance: INFLIXIMAB-DYYB
     Dosage: 330 MG, EVERY 8 WEEK
     Route: 042
     Dates: start: 20230222
  5. INFLECTRA [Suspect]
     Active Substance: INFLIXIMAB-DYYB
     Dosage: 330 MG, AFTER 9 WEEKS
     Route: 042
     Dates: start: 20230426
  6. INFLECTRA [Suspect]
     Active Substance: INFLIXIMAB-DYYB
     Dosage: 400 MG, ADMINISTERED Q8 WEEKS, SUPPOSE TO RECEIVE EVERY 4 WEEKS
     Route: 042
     Dates: start: 20230622
  7. INFLECTRA [Suspect]
     Active Substance: INFLIXIMAB-DYYB
     Dosage: 400 MG EVERY 4 WEEKS
     Route: 042
     Dates: start: 20230725
  8. INFLECTRA [Suspect]
     Active Substance: INFLIXIMAB-DYYB
     Dosage: 400 MG EVERY 4 WEEKS
     Route: 042
     Dates: start: 20231116
  9. INFLECTRA [Suspect]
     Active Substance: INFLIXIMAB-DYYB
     Dosage: 400 MG EVERY 4 WEEKS
     Route: 042
     Dates: start: 20231214
  10. PREDNISONE [Concomitant]
     Active Substance: PREDNISONE
     Dosage: UNK

REACTIONS (12)
  - Condition aggravated [Not Recovered/Not Resolved]
  - Intestinal fistula [Unknown]
  - Anal abscess [Not Recovered/Not Resolved]
  - Fistula [Unknown]
  - Abscess [Not Recovered/Not Resolved]
  - Fistula discharge [Unknown]
  - Loss of personal independence in daily activities [Not Recovered/Not Resolved]
  - Fistula inflammation [Unknown]
  - Sleep disorder [Not Recovered/Not Resolved]
  - Off label use [Unknown]
  - Off label use [Unknown]
  - Inappropriate schedule of product administration [Unknown]

NARRATIVE: CASE EVENT DATE: 20230101
